FAERS Safety Report 20319215 (Version 2)
Quarter: 2022Q1

REPORT INFORMATION
  Report Type: Spontaneous
  Country: US (occurrence: US)
  Receive Date: 20220110
  Receipt Date: 20220329
  Transmission Date: 20220423
  Serious: Yes (Other)
  Sender: FDA-Public Use
  Company Number: US-BAYER-2022A002457

PATIENT
  Age: 44 Year

DRUGS (1)
  1. ALKA-SELTZER PLUS MAXIMUM STRENGTH DAY AND NIGHT COLD AND FLU POWERMAX [Suspect]
     Active Substance: ACETAMINOPHEN\DEXTROMETHORPHAN HYDROBROMIDE\DOXYLAMINE SUCCINATE\PHENYLEPHRINE HYDROCHLORIDE
     Dosage: UNK
     Route: 048
     Dates: start: 20220102, end: 20220106

REACTIONS (4)
  - Foreign body in throat [Unknown]
  - Oesophagitis [Unknown]
  - Product use complaint [Unknown]
  - Oropharyngeal pain [None]

NARRATIVE: CASE EVENT DATE: 20220106
